FAERS Safety Report 21536583 (Version 1)
Quarter: 2022Q4

REPORT INFORMATION
  Report Type: Spontaneous
  Country: PL (occurrence: PL)
  Receive Date: 20221101
  Receipt Date: 20221101
  Transmission Date: 20230112
  Serious: Yes (Hospitalization, Other)
  Sender: FDA-Public Use
  Company Number: PL-VIPHPROD-MEM-81-2022

PATIENT

DRUGS (21)
  1. BUPROPION [Interacting]
     Active Substance: BUPROPION
     Indication: Depression
     Dosage: 300 MG, QD
     Route: 048
  2. ACETAMINOPHEN [Interacting]
     Active Substance: ACETAMINOPHEN
     Indication: Myalgia
     Dosage: 4 G, QD
     Route: 065
  3. ACETAMINOPHEN [Interacting]
     Active Substance: ACETAMINOPHEN
     Indication: Abdominal pain upper
  4. VORTIOXETINE [Interacting]
     Active Substance: VORTIOXETINE
     Indication: Depression
     Dosage: UNK
     Route: 065
  5. OMEPRAZOLE [Interacting]
     Active Substance: OMEPRAZOLE
     Indication: Acute coronary syndrome
     Dosage: 40 MG, QD
     Route: 048
  6. OMEPRAZOLE [Interacting]
     Active Substance: OMEPRAZOLE
     Dosage: 80 MG, QD (PHYSICIAN PRESCRIBED DOUBLE DOSE.)
     Route: 065
  7. ACETAMINOPHEN\TRAMADOL [Interacting]
     Active Substance: ACETAMINOPHEN\TRAMADOL
     Indication: Myalgia
     Dosage: 75 MG, TID PHYSICIAN PRESCRIBED A COMBINATION OF 75/650 MG
     Route: 048
  8. ACETAMINOPHEN\TRAMADOL [Interacting]
     Active Substance: ACETAMINOPHEN\TRAMADOL
     Indication: Abdominal pain upper
  9. TRAMADOL [Interacting]
     Active Substance: TRAMADOL
     Indication: Product used for unknown indication
     Dosage: UNK
     Route: 065
  10. NEBIVOLOL [Interacting]
     Active Substance: NEBIVOLOL
     Indication: Acute coronary syndrome
     Dosage: 5 MG, QD
     Route: 065
  11. ZOFENOPRIL [Interacting]
     Active Substance: ZOFENOPRIL
     Indication: Acute coronary syndrome
     Dosage: 7.5 MG, QD
     Route: 065
  12. MEMANTINE [Interacting]
     Active Substance: MEMANTINE
     Indication: Memory impairment
     Dosage: 10 MG, QD
     Route: 048
  13. MEMANTINE [Interacting]
     Active Substance: MEMANTINE
     Indication: Amnesia
  14. ASPIRIN [Interacting]
     Active Substance: ASPIRIN
     Indication: Acute coronary syndrome
     Dosage: 150 MG, QD
     Route: 065
  15. ITRACONAZOLE [Interacting]
     Active Substance: ITRACONAZOLE
     Indication: Onychomycosis
     Dosage: 400 MG, QD (DERMATOLOGIST 2 X 200 MG AS SEVEN DAY PULSES)
     Route: 048
  16. ITRACONAZOLE [Interacting]
     Active Substance: ITRACONAZOLE
     Indication: Fungal infection
  17. CLOPIDOGREL [Interacting]
     Active Substance: CLOPIDOGREL BISULFATE
     Indication: Acute coronary syndrome
     Dosage: 75 MG, QD
     Route: 048
  18. OMEPRAZOLE [Interacting]
     Active Substance: OMEPRAZOLE
     Indication: Antiplatelet therapy
     Dosage: 80 MG, QD
     Route: 065
  19. OMEPRAZOLE [Interacting]
     Active Substance: OMEPRAZOLE
     Dosage: 40 MG, QD
     Route: 065
  20. DROTAVERINE [Interacting]
     Active Substance: DROTAVERINE
     Indication: Abdominal pain upper
     Dosage: 240 MG, QD (3 X 80 MG/DAY )
     Route: 065
  21. SERTRALINE [Interacting]
     Active Substance: SERTRALINE HYDROCHLORIDE
     Indication: Depression
     Dosage: UNK
     Route: 065

REACTIONS (18)
  - Myalgia [Recovered/Resolved]
  - Arthralgia [Recovered/Resolved]
  - Myalgia [Recovered/Resolved]
  - Abdominal pain upper [Recovered/Resolved]
  - Inadequate analgesia [Recovered/Resolved]
  - Abdominal pain [Recovered/Resolved]
  - Drug level increased [Recovered/Resolved]
  - Drug interaction [Unknown]
  - Drug interaction [Recovered/Resolved]
  - Drug ineffective [Recovered/Resolved]
  - Medication error [Unknown]
  - Back pain [Recovered/Resolved]
  - Onychomycosis [Recovered/Resolved]
  - Condition aggravated [Recovered/Resolved]
  - Nausea [Recovered/Resolved]
  - Depression [Recovered/Resolved]
  - Off label use [Unknown]
  - Product use in unapproved indication [Recovered/Resolved]
